FAERS Safety Report 26110467 (Version 1)
Quarter: 2025Q4

REPORT INFORMATION
  Report Type: Spontaneous
  Country: US (occurrence: US)
  Receive Date: 20251202
  Receipt Date: 20251202
  Transmission Date: 20260118
  Serious: Yes (Hospitalization, Other)
  Sender: CSL BEHRING
  Company Number: US-CSL-15432

PATIENT
  Sex: Female

DRUGS (1)
  1. RIASTAP [Suspect]
     Active Substance: FIBRINOGEN HUMAN
     Route: 065

REACTIONS (2)
  - Pulmonary embolism [Unknown]
  - Wrong technique in product usage process [Unknown]
